FAERS Safety Report 13210610 (Version 3)
Quarter: 2017Q2

REPORT INFORMATION
  Report Type: Spontaneous
  Country: US (occurrence: US)
  Receive Date: 20170210
  Receipt Date: 20170427
  Transmission Date: 20170830
  Serious: Yes (Other)
  Sender: FDA-Public Use
  Company Number: US-AUROBINDO-AUR-APU-2017-29185

PATIENT
  Sex: Male

DRUGS (2)
  1. LOSARTAN POTASSIUM TABLETS USP 50MG [Suspect]
     Active Substance: LOSARTAN POTASSIUM
     Indication: HYPERTENSION
     Dosage: UNK
     Route: 065
     Dates: start: 20161215
  2. LOSARTAN POTASSIUM TABLETS USP 50MG [Suspect]
     Active Substance: LOSARTAN POTASSIUM
     Dosage: UNK
     Route: 065
     Dates: start: 20170124, end: 20170126

REACTIONS (4)
  - Blood urine present [Recovering/Resolving]
  - Renal pain [Recovering/Resolving]
  - Nephrolithiasis [Recovering/Resolving]
  - Hydronephrosis [Recovering/Resolving]
